FAERS Safety Report 10932126 (Version 3)
Quarter: 2015Q2

REPORT INFORMATION
  Report Type: Report from Study
  Country: NL (occurrence: NL)
  Receive Date: 20150319
  Receipt Date: 20150430
  Transmission Date: 20150821
  Serious: Yes (Hospitalization)
  Sender: FDA-Public Use
  Company Number: NL-AMGEN-NLDSL2015025094

PATIENT
  Age: 58 Year
  Sex: Male
  Weight: 58.7 kg

DRUGS (2)
  1. NEULASTA [Suspect]
     Active Substance: PEGFILGRASTIM
     Indication: PRODUCT USED FOR UNKNOWN INDICATION
     Dosage: 6 MG, Q3WK
     Route: 058
     Dates: start: 20150221
  2. DOCETAXEL. [Suspect]
     Active Substance: DOCETAXEL
     Indication: BREAST CANCER
     Dosage: 220 MG, UNK
     Route: 042
     Dates: start: 20150313, end: 20150314

REACTIONS (10)
  - Gastrointestinal hypomotility [Unknown]
  - Gastrointestinal pain [Unknown]
  - Pyrexia [Unknown]
  - Dry eye [Unknown]
  - Osteomyelitis [Unknown]
  - Mucosal inflammation [Recovered/Resolved]
  - Oral fungal infection [Unknown]
  - Ageusia [Unknown]
  - Viral infection [Unknown]
  - Pruritus [Unknown]

NARRATIVE: CASE EVENT DATE: 20150224
